FAERS Safety Report 12105691 (Version 2)
Quarter: 2016Q1

REPORT INFORMATION
  Report Type: Spontaneous
  Country: SE (occurrence: SE)
  Receive Date: 20160223
  Receipt Date: 20160318
  Transmission Date: 20160526
  Serious: Yes (Life-Threatening, Hospitalization, Disabling, Other)
  Sender: FDA-Public Use
  Company Number: SE-PFIZER INC-2016109601

PATIENT
  Sex: Female

DRUGS (1)
  1. CHAMPIX [Suspect]
     Active Substance: VARENICLINE TARTRATE
     Indication: SMOKING CESSATION THERAPY
     Dosage: UNK

REACTIONS (7)
  - Nightmare [Unknown]
  - Injury [Unknown]
  - Depressed level of consciousness [Unknown]
  - Obsessive thoughts [Unknown]
  - Epilepsy [Unknown]
  - Fall [Unknown]
  - Time perception altered [Unknown]
